FAERS Safety Report 8571746 (Version 2)
Quarter: 2012Q4

REPORT INFORMATION
  Report Type: 
  Country: US (occurrence: US)
  Receive Date: 20120521
  Receipt Date: 20120917
  Transmission Date: 20130627
  Serious: Yes (Death, Other)
  Sender: FDA-Public Use
  Company Number: US-ASTRAZENECA-2012SE31395

PATIENT
  Age: 74 Year
  Sex: Female

DRUGS (2)
  1. TOPROL XL [Suspect]
     Route: 048
  2. CRESTOR [Suspect]
     Route: 048

REACTIONS (5)
  - Intestinal infarction [Fatal]
  - Intestinal obstruction [Fatal]
  - Sepsis [Unknown]
  - Septic shock [Unknown]
  - Hypotension [Unknown]
